FAERS Safety Report 16584480 (Version 1)
Quarter: 2019Q3

REPORT INFORMATION
  Report Type: Spontaneous
  Country: GB (occurrence: GB)
  Receive Date: 20190717
  Receipt Date: 20190717
  Transmission Date: 20191004
  Serious: Yes (Hospitalization)
  Sender: FDA-Public Use
  Company Number: GB-DEXPHARM-20190463

PATIENT
  Age: 65 Year
  Sex: Female

DRUGS (10)
  1. ACICLOVIR [Concomitant]
     Active Substance: ACYCLOVIR
     Indication: HERPES ZOSTER
     Dosage: NIGHT.
     Route: 048
     Dates: start: 20190429, end: 20190505
  2. ACETYLSALICYLIC ACID [Concomitant]
     Active Substance: ASPIRIN
     Route: 048
  3. FLUCLOXACILLIN [Concomitant]
     Active Substance: FLUCLOXACILLIN
     Indication: SKIN INFECTION
     Dosage: NIGHT.
     Route: 048
     Dates: start: 20190429, end: 20190505
  4. ATENOLOL. [Suspect]
     Active Substance: ATENOLOL
     Route: 048
  5. EVACAL D3 CHEWABLE [Concomitant]
     Dosage: NIGHT.
     Route: 048
  6. ATORVASTATIN [Concomitant]
     Active Substance: ATORVASTATIN
     Dosage: NIGHT.
     Route: 048
  7. OMEPRAZOLE. [Suspect]
     Active Substance: OMEPRAZOLE
     Route: 048
     Dates: end: 20190502
  8. MIRTAZAPINE. [Concomitant]
     Active Substance: MIRTAZAPINE
     Dosage: NIGHT.
     Route: 048
  9. THIAMINE. [Concomitant]
     Active Substance: THIAMINE
     Dosage: NIGHT.
     Route: 048
  10. LEVETIRACETAM. [Suspect]
     Active Substance: LEVETIRACETAM
     Dosage: NIGHT.
     Route: 048
     Dates: end: 20190604

REACTIONS (5)
  - Bradycardia [Unknown]
  - Dizziness [Unknown]
  - Hypocalcaemia [Unknown]
  - Hypophosphataemia [Unknown]
  - Hypomagnesaemia [Recovering/Resolving]

NARRATIVE: CASE EVENT DATE: 20190502
